FAERS Safety Report 4504958-1 (Version None)
Quarter: 2004Q4

REPORT INFORMATION
  Report Type: 
  Country: None (occurrence: None)
  Receive Date: 20041020
  Receipt Date: 20040816
  Transmission Date: 20050328
  Serious: No
  Sender: FDA-Public Use
  Company Number: 2004-08-0801

PATIENT
  Sex: Female

DRUGS (13)
  1. CLARINEX [Suspect]
     Dosage: 2 QD ORAL
     Route: 048
  2. NASONEX [Concomitant]
  3. NASAL SUSPENSION NASAL SPRAY [Concomitant]
  4. TRILEPTAL [Concomitant]
  5. NEURONTIN [Concomitant]
  6. ESKALITH [Concomitant]
  7. KLONOPIN [Concomitant]
  8. PARNATE [Concomitant]
  9. SYNTHROID [Concomitant]
  10. ADVAIR (SALMETEROL/FLUTICASONE) ORAL AEROSOL ORAL AER INH [Concomitant]
  11. LOTRISONE (CLOTRIMAZOLE/BETAMETHASONE DIPROPIONATE) [Concomitant]
  12. ELOCON [Concomitant]
  13. HERBAL MEDICATION NOS [Concomitant]

REACTIONS (2)
  - INTENTIONAL OVERDOSE [None]
  - UNEXPECTED THERAPEUTIC DRUG EFFECT [None]
